FAERS Safety Report 8932553 (Version 1)
Quarter: 2012Q4

REPORT INFORMATION
  Report Type: Spontaneous
  Country: US (occurrence: None)
  Receive Date: 20121121
  Receipt Date: 20121121
  Transmission Date: 20130627
  Serious: Yes (Life-Threatening, Disabling)
  Sender: FDA-Public Use
  Company Number: None

PATIENT
  Age: 45 Year
  Sex: Male

DRUGS (2)
  1. DARVOCET [Suspect]
     Indication: BACK PAIN
     Dates: start: 2000, end: 2005
  2. RANITIDINE HYDROCHLORIDE [Suspect]

REACTIONS (4)
  - Heart rate abnormal [None]
  - Cardiac valve disease [None]
  - Hypertension [None]
  - Left atrial dilatation [None]
